FAERS Safety Report 6209827-7 (Version None)
Quarter: 2009Q2

REPORT INFORMATION
  Report Type: 
  Country: None (occurrence: None)
  Receive Date: 20090601
  Receipt Date: 20090525
  Transmission Date: 20091009
  Serious: Yes (Death, Other)
  Sender: FDA-Public Use
  Company Number: PHHY2009US20551

PATIENT

DRUGS (1)
  1. AREDIA [Suspect]
     Indication: MULTIPLE MYELOMA
     Route: 051

REACTIONS (3)
  - DEATH [None]
  - ORAL SURGERY [None]
  - OSTEONECROSIS [None]
